FAERS Safety Report 16779950 (Version 3)
Quarter: 2020Q3

REPORT INFORMATION
  Report Type: Spontaneous
  Country: US (occurrence: US)
  Receive Date: 20190906
  Receipt Date: 20200818
  Transmission Date: 20201102
  Serious: No
  Sender: FDA-Public Use
  Company Number: US-GILEAD-2019-0426553

PATIENT
  Sex: Male

DRUGS (36)
  1. STRIBILD [Suspect]
     Active Substance: COBICISTAT\ELVITEGRAVIR\EMTRICITABINE\TENOFOVIR DISOPROXIL FUMARATE
     Dosage: UNK
     Route: 065
     Dates: start: 201406, end: 201708
  2. VALACYCLOVIR HCL [Concomitant]
     Active Substance: VALACYCLOVIR HYDROCHLORIDE
  3. LOSARTAN/HCTZ [Concomitant]
     Active Substance: HYDROCHLOROTHIAZIDE\LOSARTAN
  4. DOXEPIN [Concomitant]
     Active Substance: DOXEPIN
  5. HYDROCODONE/ACETAMINOPHEN [Concomitant]
     Active Substance: ACETAMINOPHEN\HYDROCODONE
  6. ANDROGEL [Concomitant]
     Active Substance: TESTOSTERONE
  7. LISINOPRIL. [Concomitant]
     Active Substance: LISINOPRIL
  8. VIAGRA [Concomitant]
     Active Substance: SILDENAFIL CITRATE
  9. AMLODIPINE/VALSARTAN [Concomitant]
     Active Substance: AMLODIPINE\VALSARTAN
  10. TESTOSTERONE. [Concomitant]
     Active Substance: TESTOSTERONE
  11. BETAMETHASONE. [Concomitant]
     Active Substance: BETAMETHASONE
  12. CLOTRIMAZOLE / BETAMETH [Concomitant]
     Active Substance: BETAMETHASONE DIPROPIONATE\CLOTRIMAZOLE
  13. ABACAVIR, LAMIVUDINE AND ZIDOVUDINE [Concomitant]
     Active Substance: ABACAVIR SULFATE\LAMIVUDINE\ZIDOVUDINE
  14. EPIDUO [Concomitant]
     Active Substance: ADAPALENE\BENZOYL PEROXIDE
  15. AMLODIPINE MESILATE;HYDROCHLOROTHIAZIDE;VALSARTAN [Concomitant]
  16. CIPROFLOXACIN. [Concomitant]
     Active Substance: CIPROFLOXACIN
  17. NEVIRAPINE. [Concomitant]
     Active Substance: NEVIRAPINE
  18. AZITHROMYCIN ANHYDROUS. [Concomitant]
     Active Substance: AZITHROMYCIN ANHYDROUS
  19. VIRAMUNE [Concomitant]
     Active Substance: NEVIRAPINE
  20. METROGEL [Concomitant]
     Active Substance: METRONIDAZOLE
  21. STRIBILD [Suspect]
     Active Substance: COBICISTAT\ELVITEGRAVIR\EMTRICITABINE\TENOFOVIR DISOPROXIL FUMARATE
     Indication: HIV INFECTION
     Dosage: 1 DOSAGE FORM, QD
     Route: 048
     Dates: start: 2012, end: 2017
  22. BIKTARVY [Concomitant]
     Active Substance: BICTEGRAVIR SODIUM\EMTRICITABINE\TENOFOVIR ALAFENAMIDE FUMARATE
  23. BUPROPION. [Concomitant]
     Active Substance: BUPROPION
  24. AMLODIPINE BESYLATE. [Concomitant]
     Active Substance: AMLODIPINE BESYLATE
  25. DOXYCYCLINE HYCLATE. [Concomitant]
     Active Substance: DOXYCYCLINE HYCLATE
  26. MELOXICAM. [Concomitant]
     Active Substance: MELOXICAM
  27. OLMESARTAN/HCTZ KRKA [Concomitant]
  28. BENZONATATE. [Concomitant]
     Active Substance: BENZONATATE
  29. CLINDAGEL [Concomitant]
     Active Substance: CLINDAMYCIN PHOSPHATE
  30. GENVOYA [Concomitant]
     Active Substance: COBICISTAT\ELVITEGRAVIR\EMTRICITABINE\TENOFOVIR ALAFENAMIDE FUMARATE
  31. FLUTICASONE. [Concomitant]
     Active Substance: FLUTICASONE
  32. NYSTATIN/TRIAMCINOLONE [Concomitant]
     Active Substance: NYSTATIN\TRIAMCINOLONE
  33. TRIAMCINOLONE [Concomitant]
     Active Substance: TRIAMCINOLONE
  34. CIALIS [Concomitant]
     Active Substance: TADALAFIL
  35. TRIZIVIR [Concomitant]
     Active Substance: ABACAVIR SULFATE\LAMIVUDINE\ZIDOVUDINE
  36. DRONABINOL. [Concomitant]
     Active Substance: DRONABINOL

REACTIONS (10)
  - Bone density decreased [Not Recovered/Not Resolved]
  - Economic problem [Unknown]
  - Anhedonia [Unknown]
  - Emotional distress [Unknown]
  - Bone loss [Unknown]
  - Bone density abnormal [Unknown]
  - Anxiety [Unknown]
  - Partner stress [Unknown]
  - Tooth loss [Unknown]
  - Pain [Unknown]
